FAERS Safety Report 23456469 (Version 1)
Quarter: 2024Q1

REPORT INFORMATION
  Report Type: Spontaneous
  Country: US (occurrence: US)
  Receive Date: 20240130
  Receipt Date: 20240130
  Transmission Date: 20240410
  Serious: No
  Sender: FDA-Public Use
  Company Number: US-SA-SAC20240119000811

PATIENT
  Age: 16 Year
  Sex: Female

DRUGS (1)
  1. DUPIXENT [Suspect]
     Active Substance: DUPILUMAB
     Indication: Dermatitis atopic
     Dosage: 300 MG, QOW
     Route: 058

REACTIONS (8)
  - Diarrhoea [Unknown]
  - Fatigue [Unknown]
  - Flatulence [Unknown]
  - Sensitive skin [Unknown]
  - Pruritus [Unknown]
  - Insomnia [Unknown]
  - Injection site rash [Recovered/Resolved]
  - Injection site erythema [Unknown]
